FAERS Safety Report 7587125-7 (Version None)
Quarter: 2011Q3

REPORT INFORMATION
  Report Type: 
  Country: None (occurrence: None)
  Receive Date: 20110701
  Receipt Date: 20110628
  Transmission Date: 20111222
  Serious: Yes (Death)
  Sender: FDA-Public Use
  Company Number: PHHY2011US57385

PATIENT
  Sex: Male

DRUGS (4)
  1. STARLIX [Concomitant]
     Dosage: 60 MG, UNK
  2. AFINITOR [Suspect]
     Dosage: 10 MG, QD
     Route: 048
  3. PREVACID [Concomitant]
     Dosage: 15 MG, UNK
  4. LANTUS [Concomitant]
     Dosage: UNK

REACTIONS (1)
  - DEATH [None]
